FAERS Safety Report 11620750 (Version 2)
Quarter: 2015Q4

REPORT INFORMATION
  Report Type: Spontaneous
  Country: BR (occurrence: BR)
  Receive Date: 20151012
  Receipt Date: 20151119
  Transmission Date: 20160304
  Serious: No
  Sender: FDA-Public Use
  Company Number: BR-PFIZER INC-2015327717

PATIENT
  Age: 64 Year
  Sex: Male
  Weight: 89 kg

DRUGS (6)
  1. LIPITOR [Suspect]
     Active Substance: ATORVASTATIN CALCIUM
     Indication: VENOUS OCCLUSION
     Dosage: 1 DF, 1X/DAY (2 HOURS AFTER DINNER)
     Route: 048
     Dates: start: 20150108, end: 201509
  2. ASPIRINA [Concomitant]
     Active Substance: ASPIRIN
     Indication: POOR PERIPHERAL CIRCULATION
     Dosage: 100 MG (1 TABLET) AFTER LUNCH
  3. LIPITOR [Suspect]
     Active Substance: ATORVASTATIN CALCIUM
     Indication: BLOOD CHOLESTEROL
     Dosage: 10 MG, AT NIGHT
     Route: 048
     Dates: start: 20130108, end: 201305
  4. SELOZOK [Concomitant]
     Active Substance: METOPROLOL SUCCINATE
     Indication: BLOOD PRESSURE ABNORMAL
     Dosage: 25 MG, DAILY (IN THE MORNING)
  5. FLEXALGIN [Concomitant]
     Indication: ARTHRALGIA
     Dosage: 1 CAPSULE, DAILY
     Dates: start: 20150831
  6. ZOTAC [Concomitant]
     Indication: ARTHRALGIA
     Dosage: 1 CAPSULE, DAILY
     Dates: start: 2012

REACTIONS (2)
  - Product use issue [Unknown]
  - Chest pain [Unknown]
